FAERS Safety Report 8673386 (Version 2)
Quarter: 2013Q2

REPORT INFORMATION
  Report Type: Report from Study
  Country: MX (occurrence: MX)
  Receive Date: 20120719
  Receipt Date: 20130507
  Transmission Date: 20140414
  Serious: Yes (Death)
  Sender: FDA-Public Use
  Company Number: PHHY2012MX061331

PATIENT
  Age: 96 Year
  Sex: Male

DRUGS (2)
  1. ACLASTA [Suspect]
     Indication: OSTEOPOROSIS
     Dosage: 5 MG PER 100 ML, ANNUALLY
     Route: 042
     Dates: start: 20100604
  2. ACLASTA [Suspect]
     Dosage: 5 MG/100 ML, PER YEAR
     Route: 042
     Dates: start: 201104

REACTIONS (2)
  - Lung neoplasm malignant [Fatal]
  - Inappropriate schedule of drug administration [Unknown]
